FAERS Safety Report 4956745-8 (Version None)
Quarter: 2006Q1

REPORT INFORMATION
  Report Type: 
  Country: None (occurrence: None)
  Receive Date: 20060329
  Receipt Date: 20060317
  Transmission Date: 20060701
  Serious: Yes (Other)
  Sender: FDA-Public Use
  Company Number: US-ROCHE-441095

PATIENT
  Age: 71 Year
  Sex: Female

DRUGS (6)
  1. CELLCEPT [Suspect]
     Route: 048
     Dates: start: 20060223
  2. SOLU-MEDROL [Concomitant]
     Dosage: ROUTE REPORTED AS INFUSION.
     Route: 050
  3. COUMADIN [Concomitant]
     Indication: HEART VALVE REPLACEMENT
     Route: 065
  4. PREDNISONE [Concomitant]
     Route: 065
  5. NORVASC [Concomitant]
     Indication: HYPERTENSION
     Route: 065
  6. METOPROLOL [Concomitant]
     Indication: HYPERTENSION
     Route: 065

REACTIONS (5)
  - EPISTAXIS [None]
  - FEELING ABNORMAL [None]
  - HAEMORRHAGE [None]
  - INTERNATIONAL NORMALISED RATIO INCREASED [None]
  - MOUTH HAEMORRHAGE [None]
